FAERS Safety Report 11995121 (Version 1)
Quarter: 2016Q1

REPORT INFORMATION
  Report Type: Spontaneous
  Country: US (occurrence: US)
  Receive Date: 20160203
  Receipt Date: 20160203
  Transmission Date: 20160526
  Serious: No
  Sender: FDA-Public Use
  Company Number: US-UCBSA-2015022081

PATIENT
  Age: 32 Year
  Sex: Male

DRUGS (1)
  1. KEPPRA XR [Suspect]
     Active Substance: LEVETIRACETAM
     Indication: PRODUCT USED FOR UNKNOWN INDICATION
     Dosage: 750 MG TWICE DAILY
     Dates: start: 20100426

REACTIONS (2)
  - Road traffic accident [Unknown]
  - Seizure [Unknown]

NARRATIVE: CASE EVENT DATE: 20130912
